FAERS Safety Report 6640703-1 (Version None)
Quarter: 2010Q1

REPORT INFORMATION
  Report Type: 
  Country: None (occurrence: None)
  Receive Date: 20100318
  Receipt Date: 20100305
  Transmission Date: 20100710
  Serious: Yes (Hospitalization, Other)
  Sender: FDA-Public Use
  Company Number: US-ELI_LILLY_AND_COMPANY-US200910004059

PATIENT
  Sex: Male
  Weight: 126.98 kg

DRUGS (23)
  1. BYETTA [Suspect]
     Indication: DIABETES MELLITUS
     Dosage: 5 UG, 2/D
     Route: 058
     Dates: start: 20080501, end: 20080601
  2. LANTUS [Concomitant]
     Dosage: 75 U, EACH EVENING
     Route: 058
  3. LANTUS [Concomitant]
     Dosage: 70 U, EACH EVENING
     Route: 058
  4. LANTUS [Concomitant]
     Dosage: 40 U, EACH EVENING
     Route: 058
  5. METFORMIN HYDROCHLORIDE [Concomitant]
     Dates: end: 20080627
  6. ATENOLOL [Concomitant]
     Dosage: 25 MG, 2/D
     Route: 048
  7. ASPIRIN [Concomitant]
     Dosage: 325 MG, DAILY (1/D)
     Route: 048
  8. LISINOPRIL [Concomitant]
     Dosage: 20 MG, DAILY (1/D)
     Route: 048
  9. SIMVASTATIN [Concomitant]
     Dosage: 40 MG, EACH EVENING
     Route: 048
  10. TRICOR [Concomitant]
     Indication: HYPERTRIGLYCERIDAEMIA
     Dosage: 145 MG, DAILY (1/D)
     Route: 048
  11. ZOCOR [Concomitant]
     Indication: HYPERTRIGLYCERIDAEMIA
     Dosage: 40 MG, EACH EVENING
     Route: 048
  12. FISH OIL [Concomitant]
     Indication: HYPERTRIGLYCERIDAEMIA
     Dosage: 1000 MG, 3/D
     Route: 048
  13. GABAPENTIN [Concomitant]
     Dosage: 100 MG, 3/D
     Route: 048
  14. DICLOFENAC SODIUM [Concomitant]
     Indication: PAIN
     Dosage: 75 MG, 2/D
     Route: 048
  15. PRILOSEC [Concomitant]
     Dosage: 20 MG, DAILY (1/D)
     Route: 048
  16. NOVOLOG [Concomitant]
     Dosage: 20 U, 3/D
     Route: 058
  17. NOVOLOG [Concomitant]
     Dosage: 45 U, 3/D
     Route: 058
  18. FLUOXETINE HCL [Concomitant]
     Dosage: 20 MG, DAILY (1/D)
     Route: 048
  19. LASIX [Concomitant]
     Dosage: 40 MG, 2/D
     Route: 048
  20. TRAZODONE HCL [Concomitant]
     Dosage: 50 MG, EACH EVENING
     Route: 048
  21. TRAZODONE HCL [Concomitant]
     Dosage: 100 MG, EACH EVENING
     Route: 048
  22. NABUMETONE [Concomitant]
     Dosage: 500 MG, 2/D
     Route: 048
  23. DAYPRO [Concomitant]
     Dosage: 1200 MG, DAILY (1/D)
     Route: 048

REACTIONS (4)
  - DIABETIC NEPHROPATHY [None]
  - OFF LABEL USE [None]
  - PANCREATITIS ACUTE [None]
  - PANCREATITIS RELAPSING [None]
